FAERS Safety Report 25699164 (Version 4)
Quarter: 2025Q3

REPORT INFORMATION
  Report Type: Spontaneous
  Country: TW (occurrence: TW)
  Receive Date: 20250819
  Receipt Date: 20250926
  Transmission Date: 20251021
  Serious: Yes (Hospitalization, Other)
  Sender: ACCORD
  Company Number: TW-Accord-499709

PATIENT
  Age: 71 Year
  Sex: Male
  Weight: 70.0 kg

DRUGS (20)
  1. CISPLATIN [Suspect]
     Active Substance: CISPLATIN
     Indication: Lung adenocarcinoma stage IV
     Route: 042
     Dates: start: 20250626, end: 20250626
  2. PEMETREXED [Suspect]
     Active Substance: PEMETREXED
     Indication: Lung adenocarcinoma stage IV
     Route: 042
     Dates: start: 20250626, end: 20250626
  3. PEMBROLIZUMAB [Suspect]
     Active Substance: PEMBROLIZUMAB
     Indication: Lung adenocarcinoma stage IV
     Dosage: 200 MG, Q3WEEKS, INTRAVENOUS USE
     Route: 042
     Dates: start: 20250626, end: 20250626
  4. ACETAMINOPHEN [Concomitant]
     Active Substance: ACETAMINOPHEN
     Dates: start: 20250714, end: 20250714
  5. AMARYL [Concomitant]
     Active Substance: GLIMEPIRIDE
     Dates: start: 20241219, end: 20250813
  6. BROEN C [Concomitant]
     Dates: start: 20250515, end: 20250627
  7. CARTILAGE [Concomitant]
     Dates: start: 202505
  8. ACETAMINOPHEN\CAFFEINE [Concomitant]
     Active Substance: ACETAMINOPHEN\CAFFEINE
     Dates: start: 20250630, end: 20250702
  9. FOLIC ACID [Concomitant]
     Active Substance: FOLIC ACID
     Dates: start: 20250619, end: 20250817
  10. FURSULTIAMINE W/VITAMIN B2 [Concomitant]
     Dates: start: 20250515, end: 20250904
  11. GRAMICIDIN\NEOMYCIN\NYSTATIN [Concomitant]
     Active Substance: GRAMICIDIN\NEOMYCIN\NYSTATIN
     Dates: start: 20250703
  12. Ichderm [Concomitant]
     Dates: start: 20250710
  13. KEPPRA [Concomitant]
     Active Substance: LEVETIRACETAM
     Dates: start: 20250405, end: 20250903
  14. LIPITOR [Concomitant]
     Active Substance: ATORVASTATIN CALCIUM
     Dates: start: 20250313
  15. Pioglitazone Hydrochloride, Metformin Hydrochlorid [Concomitant]
     Dates: start: 20241219, end: 20250730
  16. MEGESTROL ACETATE [Concomitant]
     Active Substance: MEGESTROL ACETATE
     Dates: start: 20250724
  17. ACETAMINOPHEN\TRAMADOL [Concomitant]
     Active Substance: ACETAMINOPHEN\TRAMADOL
     Dates: start: 20250703
  18. METFORMIN HYDROCHLORIDE\VILDAGLIPTIN [Concomitant]
     Active Substance: METFORMIN HYDROCHLORIDE\VILDAGLIPTIN
     Dates: start: 20161117, end: 20250730
  19. DIPHENHYDRAMINE HYDROCHLORIDE [Concomitant]
     Active Substance: DIPHENHYDRAMINE HYDROCHLORIDE
     Dates: start: 20250703, end: 20250710
  20. PEMBROLIZUMAB [Suspect]
     Active Substance: PEMBROLIZUMAB
     Indication: Lung adenocarcinoma stage IV
     Dosage: 200 MG, Q3WEEKS, INTRAVENOUS USE
     Route: 042
     Dates: start: 20250812, end: 20250812

REACTIONS (2)
  - Acute kidney injury [Recovered/Resolved]
  - Anaemia [Unknown]

NARRATIVE: CASE EVENT DATE: 20250703
